FAERS Safety Report 9728801 (Version 1)
Quarter: 2013Q4

REPORT INFORMATION
  Report Type: Spontaneous
  Country: US (occurrence: US)
  Receive Date: 20131204
  Receipt Date: 20131204
  Transmission Date: 20140711
  Serious: No
  Sender: FDA-Public Use
  Company Number: US-BIOGENIDEC-2013BI092729

PATIENT
  Age: 36 Year
  Sex: Female

DRUGS (8)
  1. TECFIDERA [Suspect]
     Indication: MULTIPLE SCLEROSIS
     Route: 048
     Dates: start: 201304
  2. VITAMIN D [Concomitant]
  3. PV NEURO VITE TABLET [Concomitant]
  4. AMBIEN CR [Concomitant]
  5. GABAPENTIN [Concomitant]
  6. BACLOFEN [Concomitant]
  7. ZOLOFT [Concomitant]
  8. AMPYRA [Concomitant]

REACTIONS (1)
  - Flushing [Unknown]
